FAERS Safety Report 12605248 (Version 1)
Quarter: 2016Q3

REPORT INFORMATION
  Report Type: Spontaneous
  Country: DK (occurrence: DK)
  Receive Date: 20160729
  Receipt Date: 20160729
  Transmission Date: 20161109
  Serious: Yes (Other)
  Sender: FDA-Public Use
  Company Number: DK-ROCHE-1803140

PATIENT
  Sex: Female

DRUGS (5)
  1. FLUOROURACIL. [Suspect]
     Active Substance: FLUOROURACIL
     Indication: COLON CANCER
     Dosage: FLUOROURACIL ^HOSPIRA^
     Route: 065
     Dates: start: 20091130, end: 20100518
  2. ELOXATIN [Suspect]
     Active Substance: OXALIPLATIN
     Indication: COLON CANCER
     Route: 065
     Dates: start: 20091130, end: 20100125
  3. AVASTIN [Suspect]
     Active Substance: BEVACIZUMAB
     Indication: COLON CANCER
     Route: 065
     Dates: start: 20091130, end: 20091130
  4. CALCIUMFOLINAT [Suspect]
     Active Substance: LEUCOVORIN CALCIUM
     Indication: COLON CANCER
     Dosage: CALCIUMFOLINAT ^HOSPIRA^
     Route: 065
     Dates: start: 20091130, end: 20100518
  5. OXALIPLATIN HOSPIRA [Suspect]
     Active Substance: OXALIPLATIN
     Indication: COLON CANCER
     Dosage: OXALIPLATIN ^HOSPIRA^
     Route: 065
     Dates: start: 20100216, end: 20100216

REACTIONS (1)
  - Neuritis [Unknown]

NARRATIVE: CASE EVENT DATE: 2010
